FAERS Safety Report 7953818-2 (Version None)
Quarter: 2011Q4

REPORT INFORMATION
  Report Type: 
  Country: None (occurrence: None)
  Receive Date: 20111202
  Receipt Date: 20111128
  Transmission Date: 20120403
  Serious: Yes (Death)
  Sender: FDA-Public Use
  Company Number: JP-JNJFOC-20111003203

PATIENT
  Sex: Male
  Weight: 62 kg

DRUGS (2)
  1. GALANTAMINE HYDROBROMIDE [Suspect]
     Route: 048
     Dates: start: 20110502, end: 20110519
  2. GALANTAMINE HYDROBROMIDE [Suspect]
     Indication: DEMENTIA ALZHEIMER'S TYPE
     Route: 048
     Dates: start: 20110520, end: 20110917

REACTIONS (2)
  - URTICARIA [None]
  - CARDIAC FAILURE [None]
